FAERS Safety Report 7928338-1 (Version None)
Quarter: 2011Q4

REPORT INFORMATION
  Report Type: 
  Country: None (occurrence: None)
  Receive Date: 20111118
  Receipt Date: 20111109
  Transmission Date: 20120403
  Serious: Yes (Death)
  Sender: FDA-Public Use
  Company Number: US-PFIZER INC-2011281981

PATIENT
  Sex: Male

DRUGS (4)
  1. EPHEDRINE [Suspect]
  2. ALPRAZOLAM [Suspect]
  3. OXYCONTIN [Concomitant]
  4. MORPHINE SULFATE [Suspect]

REACTIONS (1)
  - MULTIPLE DRUG OVERDOSE [None]
